FAERS Safety Report 25420164 (Version 1)
Quarter: 2025Q2

REPORT INFORMATION
  Report Type: Spontaneous
  Country: PL (occurrence: PL)
  Receive Date: 20250610
  Receipt Date: 20250610
  Transmission Date: 20250716
  Serious: Yes (Hospitalization, Other)
  Sender: ALEXION PHARMACEUTICALS
  Company Number: PL-AstraZeneca-CH-00885355AM

PATIENT
  Age: 66 Year

DRUGS (1)
  1. DAPAGLIFLOZIN [Suspect]
     Active Substance: DAPAGLIFLOZIN
     Indication: Cardiac failure
     Route: 065

REACTIONS (11)
  - Dizziness [Unknown]
  - Dry mouth [Unknown]
  - Asthenia [Unknown]
  - Loss of consciousness [Unknown]
  - Fall [Unknown]
  - Rib fracture [Unknown]
  - Abnormal behaviour [Unknown]
  - Syncope [Unknown]
  - Memory impairment [Unknown]
  - Discomfort [Unknown]
  - Fear [Unknown]
